FAERS Safety Report 13260331 (Version 3)
Quarter: 2017Q3

REPORT INFORMATION
  Report Type: Report from Study
  Country: RU (occurrence: RU)
  Receive Date: 20170222
  Receipt Date: 20170810
  Transmission Date: 20171127
  Serious: Yes (Hospitalization, Disabling)
  Sender: FDA-Public Use
  Company Number: RU-CELGENEUS-RUS-2016122311

PATIENT
  Age: 75 Year
  Sex: Female

DRUGS (14)
  1. ABRAXANE [Suspect]
     Active Substance: PACLITAXEL
     Indication: BREAST CANCER
     Dosage: 100MG/M2
     Route: 041
     Dates: start: 20161109, end: 20161116
  2. ATEZOLIZUMAB. [Suspect]
     Active Substance: ATEZOLIZUMAB
     Indication: BREAST CANCER
     Route: 041
     Dates: start: 20161109, end: 20161109
  3. PANCREATIN [Concomitant]
     Active Substance: PANCRELIPASE
     Indication: DIARRHOEA
     Route: 065
     Dates: start: 20161118, end: 20161121
  4. PANCREATIN [Concomitant]
     Active Substance: PANCRELIPASE
     Indication: GASTROINTESTINAL TOXICITY
  5. ABRAXANE [Suspect]
     Active Substance: PACLITAXEL
     Dosage: 75 MILLIGRAM/SQ. METER
     Route: 041
     Dates: start: 20161221, end: 20161221
  6. BISOPROLOL [Concomitant]
     Active Substance: BISOPROLOL
     Indication: HYPERTENSION
     Route: 065
     Dates: start: 201608, end: 201610
  7. GRANOCYT [Concomitant]
     Indication: LEUKOPENIA
     Route: 065
     Dates: start: 20161119, end: 20161119
  8. KETOROLAC [Concomitant]
     Active Substance: KETOROLAC\KETOROLAC TROMETHAMINE
     Indication: BACK PAIN
     Route: 065
     Dates: start: 20161026
  9. RELAXAN [Concomitant]
     Indication: INSOMNIA
     Route: 065
     Dates: start: 2016
  10. PROCAINE [Concomitant]
     Active Substance: PROCAINE
     Indication: LOCAL ANAESTHESIA
     Route: 065
     Dates: start: 20170113, end: 20170113
  11. OXYGEN. [Concomitant]
     Active Substance: OXYGEN
     Indication: OXYGEN THERAPY
     Route: 065
  12. SULFOKAMFOKAIN [Concomitant]
     Indication: DYSPNOEA
     Route: 065
  13. BISOPROLOL [Concomitant]
     Active Substance: BISOPROLOL
     Route: 065
  14. CAMPHORSULFONIC ACID W/PROCAINE [Concomitant]
     Indication: DYSPNOEA
     Route: 065
     Dates: start: 20170112

REACTIONS (5)
  - Gastrointestinal toxicity [Recovered/Resolved]
  - Pneumonia [Recovered/Resolved]
  - Peripheral motor neuropathy [Not Recovered/Not Resolved]
  - Myopathy [Not Recovered/Not Resolved]
  - Pneumonia [Not Recovered/Not Resolved]

NARRATIVE: CASE EVENT DATE: 20161118
